FAERS Safety Report 22177618 (Version 1)
Quarter: 2023Q2

REPORT INFORMATION
  Report Type: Spontaneous
  Country: US (occurrence: None)
  Receive Date: 20230404
  Receipt Date: 20230404
  Transmission Date: 20230722
  Serious: Yes (Death)
  Sender: FDA-Public Use
  Company Number: None

PATIENT
  Age: 20 Month
  Sex: Female

DRUGS (2)
  1. REVATIO [Suspect]
     Active Substance: SILDENAFIL CITRATE
     Indication: Pulmonary hypertension
     Dosage: OTHER FREQUENCY : OTHER;?OTHER ROUTE : OTHER;?
     Route: 050
     Dates: start: 20221220, end: 20230301
  2. SYNAGIS [Concomitant]
     Active Substance: PALIVIZUMAB

REACTIONS (1)
  - Death [None]

NARRATIVE: CASE EVENT DATE: 20230404
